FAERS Safety Report 6787924-5 (Version None)
Quarter: 2010Q2

REPORT INFORMATION
  Report Type: 
  Country: None (occurrence: None)
  Receive Date: 20100623
  Receipt Date: 20071115
  Transmission Date: 20101027
  Serious: Yes (Other)
  Sender: FDA-Public Use
  Company Number: US-PFIZER INC-2007096200

PATIENT
  Sex: Female

DRUGS (1)
  1. SOLU-MEDROL [Suspect]
     Dates: start: 19850101

REACTIONS (4)
  - CONFUSIONAL STATE [None]
  - INSOMNIA [None]
  - PSYCHOTIC DISORDER [None]
  - TACHYCARDIA [None]
